FAERS Safety Report 15427817 (Version 1)
Quarter: 2018Q3

REPORT INFORMATION
  Report Type: Report from Study
  Country: NL (occurrence: NL)
  Receive Date: 20180926
  Receipt Date: 20180926
  Transmission Date: 20181010
  Serious: Yes (Life-Threatening, Hospitalization, Other)
  Sender: FDA-Public Use
  Company Number: NL-BRISTOL-MYERS SQUIBB COMPANY-BMS-2018-087679

PATIENT
  Age: 64 Year
  Sex: Male

DRUGS (1)
  1. NIVOLUMAB [Suspect]
     Active Substance: NIVOLUMAB
     Indication: NON-SMALL CELL LUNG CANCER
     Route: 065

REACTIONS (6)
  - Wound haemorrhage [Recovered/Resolved]
  - Wound infection pseudomonas [Unknown]
  - Escherichia infection [Unknown]
  - Streptococcal infection [Unknown]
  - Wound infection bacterial [Unknown]
  - Metastases to chest wall [Recovered/Resolved]

NARRATIVE: CASE EVENT DATE: 20170222
